FAERS Safety Report 7754532-9 (Version None)
Quarter: 2011Q3

REPORT INFORMATION
  Report Type: 
  Country: None (occurrence: None)
  Receive Date: 20110915
  Receipt Date: 20110526
  Transmission Date: 20111222
  Serious: No
  Sender: FDA-Public Use
  Company Number: US-BAYER-2011-045865

PATIENT
  Age: 53 Year
  Sex: Female

DRUGS (1)
  1. ULTRAVIST 150 [Suspect]
     Indication: COMPUTERISED TOMOGRAM
     Dosage: 95 ML, ONCE
     Route: 042
     Dates: start: 20110526, end: 20110526

REACTIONS (6)
  - PRURITUS [None]
  - EYE PRURITUS [None]
  - SWOLLEN TONGUE [None]
  - OROPHARYNGEAL DISCOMFORT [None]
  - SWELLING FACE [None]
  - EYE SWELLING [None]
